FAERS Safety Report 4420421-0 (Version None)
Quarter: 2004Q3

REPORT INFORMATION
  Report Type: 
  Country: None (occurrence: None)
  Receive Date: 20040809
  Receipt Date: 20040225
  Transmission Date: 20050211
  Serious: No
  Sender: FDA-Public Use
  Company Number: US-GLAXOSMITHKLINE-A0499823A

PATIENT
  Age: 56 Year
  Sex: Male

DRUGS (5)
  1. PAXIL CR [Suspect]
     Indication: DEPRESSION
     Dosage: 25MG PER DAY
     Route: 048
  2. CARDIZEM [Concomitant]
  3. COUMADIN [Concomitant]
  4. NORVASC [Concomitant]
  5. XANAX [Concomitant]

REACTIONS (2)
  - ANXIETY [None]
  - FATIGUE [None]
